FAERS Safety Report 9163900 (Version 1)
Quarter: 2013Q1

REPORT INFORMATION
  Report Type: Spontaneous
  Country: US (occurrence: US)
  Receive Date: 20130314
  Receipt Date: 20130314
  Transmission Date: 20140127
  Serious: Yes (Other)
  Sender: FDA-Public Use
  Company Number: US-BAXTER-2013BAX009300

PATIENT
  Age: 81 Year
  Sex: Female

DRUGS (1)
  1. STERILE WATER FOR IRRIGATION [Suspect]
     Indication: SURGERY

REACTIONS (2)
  - Transurethral resection syndrome [Recovered/Resolved with Sequelae]
  - Bladder perforation [Unknown]
